FAERS Safety Report 16910301 (Version 1)
Quarter: 2019Q4

REPORT INFORMATION
  Report Type: Report from Study
  Country: PL (occurrence: PL)
  Receive Date: 20191011
  Receipt Date: 20191011
  Transmission Date: 20200122
  Serious: Yes (Hospitalization)
  Sender: FDA-Public Use
  Company Number: PL-TAKEDA-2019TUS056560

PATIENT
  Age: 54 Year
  Sex: Female
  Weight: 59 kg

DRUGS (2)
  1. VEDOLIZUMAB [Suspect]
     Active Substance: VEDOLIZUMAB
     Indication: COLITIS ULCERATIVE
     Dosage: 300 MILLIGRAM
     Route: 042
     Dates: start: 20190301
  2. ENCORTON                           /00044701/ [Suspect]
     Active Substance: PREDNISONE
     Indication: COLITIS ULCERATIVE
     Dosage: 15 MILLIGRAM, QD
     Route: 048
     Dates: start: 20190228, end: 20190708

REACTIONS (1)
  - Cytomegalovirus colitis [Recovered/Resolved]

NARRATIVE: CASE EVENT DATE: 20190614
